FAERS Safety Report 25589576 (Version 2)
Quarter: 2025Q3

REPORT INFORMATION
  Report Type: Spontaneous
  Country: US (occurrence: US)
  Receive Date: 20250722
  Receipt Date: 20250923
  Transmission Date: 20251020
  Serious: Yes (Hospitalization, Other)
  Sender: ALEXION PHARMACEUTICALS
  Company Number: US-ASTRAZENECA-202507USA014426US

PATIENT
  Sex: Female

DRUGS (1)
  1. SOLIRIS [Suspect]
     Active Substance: ECULIZUMAB
     Indication: Atypical haemolytic uraemic syndrome
     Route: 065

REACTIONS (6)
  - Chronic kidney disease [Unknown]
  - Systemic lupus erythematosus [Unknown]
  - May-Thurner syndrome [Unknown]
  - Anaemia [Unknown]
  - Hypertension [Not Recovered/Not Resolved]
  - COVID-19 [Unknown]
